FAERS Safety Report 5293270-1 (Version None)
Quarter: 2007Q2

REPORT INFORMATION
  Report Type: 
  Country: None (occurrence: None)
  Receive Date: 20070411
  Receipt Date: 20070405
  Transmission Date: 20071010
  Serious: Yes (Death)
  Sender: FDA-Public Use
  Company Number: JP-BRACCO-BRO-011631

PATIENT
  Age: 68 Year
  Sex: Female

DRUGS (2)
  1. IOPAMIRON [Suspect]
     Indication: HEPATIC MASS
     Route: 042
     Dates: start: 20070403, end: 20070403
  2. IOPAMIRON [Suspect]
     Indication: COMPUTERISED TOMOGRAM
     Route: 042
     Dates: start: 20070403, end: 20070403

REACTIONS (5)
  - CHEST DISCOMFORT [None]
  - FLUSHING [None]
  - SNEEZING [None]
  - UNEVALUABLE EVENT [None]
  - VOMITING [None]
